FAERS Safety Report 24622986 (Version 1)
Quarter: 2024Q4

REPORT INFORMATION
  Report Type: Report from Study
  Country: JP (occurrence: JP)
  Receive Date: 20241115
  Receipt Date: 20241115
  Transmission Date: 20250115
  Serious: Yes (Other)
  Sender: ROCHE
  Company Number: JP-ROCHE-10000126314

PATIENT

DRUGS (2)
  1. ATEZOLIZUMAB [Suspect]
     Active Substance: ATEZOLIZUMAB
     Indication: Hepatocellular carcinoma
     Route: 042
  2. BEVACIZUMAB [Suspect]
     Active Substance: BEVACIZUMAB
     Indication: Hepatocellular carcinoma
     Route: 065

REACTIONS (13)
  - Proteinuria [Unknown]
  - Hypertension [Unknown]
  - Aspartate aminotransferase increased [Unknown]
  - Alanine aminotransferase increased [Unknown]
  - Duodenal perforation [Unknown]
  - Interstitial lung disease [Unknown]
  - Leukaemia [Unknown]
  - Cerebral haemorrhage [Unknown]
  - Pneumonia bacterial [Unknown]
  - Hepatic function abnormal [Unknown]
  - Colitis [Unknown]
  - Guillain-Barre syndrome [Unknown]
  - Aortic dissection [Unknown]
